FAERS Safety Report 7550512-7 (Version None)
Quarter: 2011Q2

REPORT INFORMATION
  Report Type: 
  Country: None (occurrence: None)
  Receive Date: 20110615
  Receipt Date: 20110606
  Transmission Date: 20111010
  Serious: Yes (Other)
  Sender: FDA-Public Use
  Company Number: GB-ELI_LILLY_AND_COMPANY-GB201106001321

PATIENT
  Age: 48 Year
  Sex: Female
  Weight: 60 kg

DRUGS (1)
  1. OLANZAPINE [Suspect]
     Indication: DEPRESSION
     Dosage: 5 MG, QD
     Route: 048
     Dates: start: 20110428, end: 20110429

REACTIONS (3)
  - ANGIOEDEMA [None]
  - PSYCHOMOTOR HYPERACTIVITY [None]
  - OFF LABEL USE [None]
